FAERS Safety Report 25395635 (Version 1)
Quarter: 2025Q2

REPORT INFORMATION
  Report Type: Report from Study
  Country: US (occurrence: US)
  Receive Date: 20250604
  Receipt Date: 20250604
  Transmission Date: 20250716
  Serious: Yes (Other)
  Sender: BAYER HEALTHCARE PHARMACEUTICALS INC.
  Company Number: US-BAYER-2025A073509

PATIENT
  Age: 73 Year
  Sex: Female
  Weight: 87.075 kg

DRUGS (18)
  1. ADEMPAS [Suspect]
     Active Substance: RIOCIGUAT
     Indication: Pulmonary arterial hypertension
     Dosage: 0.5 MG, TID
     Route: 048
     Dates: start: 20250423
  2. Omega [Concomitant]
  3. POTASSIUM CHLORIDE [Concomitant]
     Active Substance: POTASSIUM CHLORIDE
  4. ROSUVASTATIN CALCIUM [Concomitant]
     Active Substance: ROSUVASTATIN CALCIUM
  5. BISOPROLOL FUMARATE [Concomitant]
     Active Substance: BISOPROLOL FUMARATE
  6. BREO ELLIPTA [Concomitant]
     Active Substance: FLUTICASONE FUROATE\VILANTEROL TRIFENATATE
  7. VYZULTA [Concomitant]
     Active Substance: LATANOPROSTENE BUNOD
  8. MELATONIN [Concomitant]
     Active Substance: MELATONIN
  9. PROAIR RESPICLICK [Concomitant]
     Active Substance: ALBUTEROL SULFATE
  10. ZETIA [Concomitant]
     Active Substance: EZETIMIBE
  11. OXCARBAZEPINE [Concomitant]
     Active Substance: OXCARBAZEPINE
  12. MONTELUKAST SODIUM [Concomitant]
     Active Substance: MONTELUKAST SODIUM
  13. MINERALS\VITAMINS [Concomitant]
     Active Substance: MINERALS\VITAMINS
  14. ULORIC [Concomitant]
     Active Substance: FEBUXOSTAT
  15. GABAPENTIN [Concomitant]
     Active Substance: GABAPENTIN
  16. FUROSEMIDE [Concomitant]
     Active Substance: FUROSEMIDE
  17. ASPIRIN [Concomitant]
     Active Substance: ASPIRIN
  18. FLUOXETINE HYDROCHLORIDE [Concomitant]
     Active Substance: FLUOXETINE HYDROCHLORIDE

REACTIONS (4)
  - Fall [None]
  - Hypotension [None]
  - Feeling abnormal [None]
  - Asthenia [None]

NARRATIVE: CASE EVENT DATE: 20250501
